FAERS Safety Report 18349142 (Version 2)
Quarter: 2020Q4

REPORT INFORMATION
  Report Type: Spontaneous
  Country: ES (occurrence: ES)
  Receive Date: 20201006
  Receipt Date: 20201021
  Transmission Date: 20210114
  Serious: Yes (Other)
  Sender: FDA-Public Use
  Company Number: ES-TEVA-2020-ES-1835366

PATIENT
  Age: 64 Year
  Sex: Male

DRUGS (4)
  1. TEICOPLANIN [Concomitant]
     Active Substance: TEICOPLANIN
     Indication: ANTIBIOTIC THERAPY
     Route: 065
  2. LOPINAVIR /RITONAVIR [Concomitant]
     Active Substance: LOPINAVIR\RITONAVIR
     Indication: COVID-19 PNEUMONIA
     Dosage: 2 DOSAGE FORMS DAILY;
  3. HYDROXYCHLOROQUINE [Suspect]
     Active Substance: HYDROXYCHLOROQUINE
     Indication: COVID-19 PNEUMONIA
     Dosage: 800 MILLIGRAM DAILY; HE RECEIVED HYDROXYCHLOROQUINE 400MG TWICE A DAY ON THE FIRST DAY FOLLOWED BY 2
     Route: 065
  4. HYDROXYCHLOROQUINE [Suspect]
     Active Substance: HYDROXYCHLOROQUINE
     Indication: COVID-19 PNEUMONIA
     Dosage: FOR 10 DAYS
     Route: 065

REACTIONS (2)
  - Erythema [Recovered/Resolved]
  - Pustule [Recovered/Resolved]
